FAERS Safety Report 6892894-5 (Version None)
Quarter: 2010Q3

REPORT INFORMATION
  Report Type: 
  Country: None (occurrence: None)
  Receive Date: 20100731
  Receipt Date: 20081110
  Transmission Date: 20110219
  Serious: No
  Sender: FDA-Public Use
  Company Number: US-PFIZER INC-2007002776

PATIENT
  Sex: Female
  Weight: 77.11 kg

DRUGS (12)
  1. GABAPENTIN [Suspect]
     Indication: NEURALGIA
  2. LYRICA [Suspect]
     Indication: ORAL DISCOMFORT
     Dates: start: 20061215
  3. LYRICA [Suspect]
     Indication: NEUROPATHY PERIPHERAL
  4. LYRICA [Suspect]
  5. NEURONTIN [Suspect]
     Indication: NEUROPATHY PERIPHERAL
     Dates: start: 20060901, end: 20061101
  6. VALSARTAN [Concomitant]
     Indication: BLOOD PRESSURE
     Dates: start: 20020101
  7. CADUET [Concomitant]
     Indication: BLOOD PRESSURE
     Dates: start: 20040101
  8. CADUET [Concomitant]
     Indication: BLOOD CHOLESTEROL
  9. EFFEXOR [Concomitant]
     Indication: DEPRESSION
     Dates: start: 20050101
  10. CLONAZEPAM [Concomitant]
     Indication: BURNING SENSATION
     Dates: start: 20050101
  11. CHOLESTEROL- AND TRIGLYCERIDE REDUCERS [Concomitant]
  12. ANTIHYPERTENSIVES [Concomitant]

REACTIONS (7)
  - BURNING SENSATION [None]
  - CIRCADIAN RHYTHM SLEEP DISORDER [None]
  - DRUG EFFECT DECREASED [None]
  - DRUG INEFFECTIVE [None]
  - FATIGUE [None]
  - FEELING ABNORMAL [None]
  - HYPOAESTHESIA [None]
